FAERS Safety Report 4319588-4 (Version None)
Quarter: 2004Q1

REPORT INFORMATION
  Report Type: 
  Country: None (occurrence: None)
  Receive Date: 20040318
  Receipt Date: 20040318
  Transmission Date: 20041129
  Serious: Yes (Hospitalization)
  Sender: FDA-Public Use
  Company Number: None

PATIENT
  Sex: Female
  Weight: 100.2449 kg

DRUGS (1)
  1. DEPO-PROVERA [Suspect]
     Dosage: SHOT 3 MONTHS INTRAMUSCULAR
     Route: 030

REACTIONS (10)
  - AMENORRHOEA [None]
  - FEELING ABNORMAL [None]
  - GALLBLADDER DISORDER [None]
  - IRRITABLE BOWEL SYNDROME [None]
  - LOSS OF LIBIDO [None]
  - OVARIAN CYST [None]
  - SOMATOFORM DISORDER PREGNANCY [None]
  - VISION BLURRED [None]
  - VULVOVAGINAL DRYNESS [None]
  - WEIGHT INCREASED [None]
